FAERS Safety Report 10189731 (Version 1)
Quarter: 2014Q2

REPORT INFORMATION
  Report Type: Spontaneous
  Country: US (occurrence: US)
  Receive Date: 20140522
  Receipt Date: 20140522
  Transmission Date: 20141212
  Serious: Yes (Other)
  Sender: FDA-Public Use
  Company Number: US-PFIZER INC-2014139815

PATIENT
  Sex: Female

DRUGS (1)
  1. ZOLOFT [Suspect]
     Dosage: UNK
     Route: 048
     Dates: end: 2011

REACTIONS (5)
  - Road traffic accident [Unknown]
  - Depressed mood [Unknown]
  - Insomnia [Unknown]
  - Disturbance in attention [Unknown]
  - Tremor [Unknown]
